FAERS Safety Report 4695793-2 (Version None)
Quarter: 2005Q2

REPORT INFORMATION
  Report Type: 
  Country: None (occurrence: None)
  Receive Date: 20050620
  Receipt Date: 20050620
  Transmission Date: 20051028
  Serious: Yes (Hospitalization)
  Sender: FDA-Public Use
  Company Number: None

PATIENT

DRUGS (1)
  1. ANGIOFLUOR 10% (FLUORESCEIN INJECTION 10%) [Suspect]
     Dates: end: 20040917

REACTIONS (1)
  - SEPSIS [None]
